FAERS Safety Report 23906734 (Version 3)
Quarter: 2025Q1

REPORT INFORMATION
  Report Type: Report from Study
  Country: CA (occurrence: CA)
  Receive Date: 20240528
  Receipt Date: 20250211
  Transmission Date: 20250408
  Serious: No
  Sender: ROCHE
  Company Number: CA-ROCHE-3570392

PATIENT
  Sex: Female

DRUGS (22)
  1. OCREVUS [Suspect]
     Active Substance: OCRELIZUMAB
     Indication: Primary progressive multiple sclerosis
     Dosage: 300 MG AT DAY 0 AND 14, THEN 600 MG EVERY 6 MONTHS
     Route: 042
     Dates: start: 20240109
  2. ATENOLOL [Concomitant]
     Active Substance: ATENOLOL
  3. ATORVASTATIN [Concomitant]
     Active Substance: ATORVASTATIN
  4. BACLOFEN [Concomitant]
     Active Substance: BACLOFEN
  5. CLONAZEPAM [Concomitant]
     Active Substance: CLONAZEPAM
  6. COENZYME Q10 [Concomitant]
     Active Substance: DIETARY SUPPLEMENT\UBIDECARENONE
  7. DULOXETINE [Concomitant]
     Active Substance: DULOXETINE
  8. Lansoprazole EC [Concomitant]
  9. MYRBETRIQ [Concomitant]
     Active Substance: MIRABEGRON
  10. NABILONE [Concomitant]
     Active Substance: NABILONE
  11. SOLIFENACIN [Concomitant]
     Active Substance: SOLIFENACIN
  12. Tara-Bupropion XL [Concomitant]
  13. TRAZODONE [Concomitant]
     Active Substance: TRAZODONE HYDROCHLORIDE
  14. REPATHA [Concomitant]
     Active Substance: EVOLOCUMAB
  15. VITAMIN D [Concomitant]
     Active Substance: VITAMIN D NOS
  16. MELATONIN [Concomitant]
     Active Substance: MELATONIN
  17. SYMBICORT [Concomitant]
     Active Substance: BUDESONIDE\FORMOTEROL FUMARATE DIHYDRATE
  18. OMNARIS [Concomitant]
     Active Substance: CICLESONIDE
  19. ALBUTEROL [Concomitant]
     Active Substance: ALBUTEROL
  20. ESTROGEL [Concomitant]
     Active Substance: ESTRADIOL
  21. PREMARIN [Concomitant]
     Active Substance: ESTROGENS, CONJUGATED
     Route: 067
  22. SYSTANE (HYPROMELLOSE 2910 (4000 MPA.S)) [Concomitant]
     Active Substance: HYPROMELLOSE 2910 (4000 MPA.S)

REACTIONS (4)
  - Back pain [Not Recovered/Not Resolved]
  - Influenza [Recovered/Resolved]
  - Therapeutic response decreased [Unknown]
  - Fatigue [Unknown]
